FAERS Safety Report 6440207-5 (Version None)
Quarter: 2009Q4

REPORT INFORMATION
  Report Type: 
  Country: None (occurrence: None)
  Receive Date: 20091113
  Receipt Date: 20091020
  Transmission Date: 20100525
  Serious: No
  Sender: FDA-Public Use
  Company Number: A0807318A

PATIENT
  Age: 77 Year
  Sex: Female
  Weight: 76.4 kg

DRUGS (1)
  1. CARVEDILOL [Suspect]
     Indication: DRUG USE FOR UNKNOWN INDICATION
     Dosage: 3.125U TWICE PER DAY
     Route: 048
     Dates: start: 20090713

REACTIONS (3)
  - LIP OEDEMA [None]
  - STOMATITIS [None]
  - TONGUE OEDEMA [None]
